FAERS Safety Report 7383417-5 (Version None)
Quarter: 2011Q1

REPORT INFORMATION
  Report Type: 
  Country: None (occurrence: None)
  Receive Date: 20110325
  Receipt Date: 20110325
  Transmission Date: 20110831
  Serious: Yes (Hospitalization)
  Sender: FDA-Public Use
  Company Number: None

PATIENT
  Age: 83 Year
  Sex: Female
  Weight: 54.4 kg

DRUGS (13)
  1. ACETAMINOPHEN [Concomitant]
  2. POTASSIUM CHLORIDE [Concomitant]
  3. OMEPRAZOLE [Concomitant]
  4. AUGMENTIN [Concomitant]
  5. M.V.I. [Concomitant]
  6. ASPIRIN [Suspect]
     Indication: ATRIAL FIBRILLATION
     Dosage: 81 MG BID/DAY PO AFIB/PROSTHETIC VALVE
     Route: 048
  7. PREDNISONE [Concomitant]
  8. COUMADIN [Suspect]
     Indication: ATRIAL FIBRILLATION
     Dosage: 1.5 MG DAILY PO CHRONIC
     Route: 048
  9. AGGRENOX [Suspect]
     Indication: ATRIAL FIBRILLATION
     Dosage: 1 CAPSUL/81MG BID/DAY PO CHRONIC
  10. SYNTHROID [Concomitant]
  11. METOPROLOL [Concomitant]
  12. BUMEX [Concomitant]
  13. SIMVASTATIN [Concomitant]

REACTIONS (6)
  - INTERNATIONAL NORMALISED RATIO INCREASED [None]
  - DIVERTICULITIS [None]
  - DIVERTICULUM [None]
  - INTESTINAL MASS [None]
  - UPPER GASTROINTESTINAL HAEMORRHAGE [None]
  - RECTAL HAEMORRHAGE [None]
